FAERS Safety Report 6728457-1 (Version None)
Quarter: 2010Q2

REPORT INFORMATION
  Report Type: 
  Country: None (occurrence: None)
  Receive Date: 20100517
  Receipt Date: 20100503
  Transmission Date: 20101027
  Serious: Yes (Other)
  Sender: FDA-Public Use
  Company Number: US-MYLANLABS-2010S1007657

PATIENT
  Age: 39 Year
  Sex: Female

DRUGS (7)
  1. AMANTADINE HCL [Suspect]
     Indication: TREMOR
  2. AMANTADINE HCL [Suspect]
  3. FLUOXETINE [Suspect]
  4. TOPIRAMATE [Suspect]
     Indication: CONVULSION
  5. BUPROPION HCL [Concomitant]
  6. GLATIRAMER ACETATE [Concomitant]
     Route: 058
  7. CLONAZEPAM [Concomitant]

REACTIONS (1)
  - CORNEAL OEDEMA [None]
